FAERS Safety Report 16608068 (Version 1)
Quarter: 2019Q3

REPORT INFORMATION
  Report Type: Other
  Country: DE (occurrence: DE)
  Receive Date: 20190722
  Receipt Date: 20190722
  Transmission Date: 20191004
  Serious: Yes (Other)
  Sender: FDA-Public Use
  Company Number: DE-MACLEODS PHARMACEUTICALS US LTD-MAC2019022174

PATIENT

DRUGS (6)
  1. ESCITALOPRAM [Suspect]
     Active Substance: ESCITALOPRAM OXALATE
     Indication: DEPRESSION
     Dosage: 10 MILLIGRAM, QD
     Route: 048
     Dates: start: 20150409, end: 20150617
  2. BRAUNOVIDON [Concomitant]
     Indication: PRODUCT USED FOR UNKNOWN INDICATION
     Dosage: UNK
     Route: 065
  3. RIBAVIRIN. [Suspect]
     Active Substance: RIBAVIRIN
     Indication: CHRONIC HEPATITIS C
     Dosage: 600 MILLIGRAM, BID
     Route: 048
     Dates: start: 20150319, end: 20150502
  4. RIBAVIRIN. [Suspect]
     Active Substance: RIBAVIRIN
     Dosage: 400 MILLIGRAM, BID
     Route: 048
     Dates: start: 20150503, end: 20150517
  5. LEDIPASVIR/SOFOSBUVIR [Suspect]
     Active Substance: LEDIPASVIR\SOFOSBUVIR
     Indication: CHRONIC HEPATITIS C
     Dosage: 90 MILLIGRAM, QD
     Route: 048
     Dates: start: 20150319, end: 20150610
  6. RIBAVIRIN. [Suspect]
     Active Substance: RIBAVIRIN
     Dosage: 400MG-0-200MG
     Route: 048
     Dates: start: 20150518, end: 20150610

REACTIONS (3)
  - Pancreatitis [Recovering/Resolving]
  - Nausea [Recovered/Resolved]
  - Skin ulcer [Unknown]

NARRATIVE: CASE EVENT DATE: 20150416
